FAERS Safety Report 4643179-9 (Version None)
Quarter: 2005Q2

REPORT INFORMATION
  Report Type: 
  Country: None (occurrence: None)
  Receive Date: 20050422
  Receipt Date: 20050408
  Transmission Date: 20051028
  Serious: Yes (Hospitalization, Other)
  Sender: FDA-Public Use
  Company Number: 2005057366

PATIENT
  Age: 60 Year
  Sex: Female
  Weight: 77.1115 kg

DRUGS (4)
  1. BEXTRA [Suspect]
     Indication: JOINT INJURY
     Dosage: (1 IN 1 D)
     Dates: end: 20050101
  2. METOPROLOL TARTRATE [Concomitant]
  3. OLMESARTAN MEDOXOMIL [Concomitant]
  4. VITAMINS [Concomitant]

REACTIONS (6)
  - INFECTION [None]
  - LYMPHADENOPATHY [None]
  - NOSE DEFORMITY [None]
  - RASH [None]
  - STAPHYLOCOCCAL INFECTION [None]
  - STREPTOCOCCAL INFECTION [None]
